FAERS Safety Report 16543883 (Version 1)
Quarter: 2019Q3

REPORT INFORMATION
  Report Type: Spontaneous
  Country: CA (occurrence: CA)
  Receive Date: 20190709
  Receipt Date: 20190709
  Transmission Date: 20191004
  Serious: Yes (Other)
  Sender: FDA-Public Use
  Company Number: CA-EISAI MEDICAL RESEARCH-EC-2019-058632

PATIENT
  Age: 67 Year
  Sex: Male

DRUGS (6)
  1. IOMEPROL [Suspect]
     Active Substance: IOMEPROL
     Route: 065
  2. SODIUM IODIDE [Concomitant]
     Active Substance: SODIUM IODIDE
     Indication: PRODUCT USED FOR UNKNOWN INDICATION
     Dosage: DOSE AND FREQUENCY UNKNOWN
     Route: 065
  3. IOMEPROL [Suspect]
     Active Substance: IOMEPROL
     Indication: ANGIOCARDIOGRAM
     Route: 065
  4. IOMEPROL [Suspect]
     Active Substance: IOMEPROL
     Indication: PERIPHERAL ARTERY ANGIOPLASTY
     Route: 065
  5. LENVIMA [Suspect]
     Active Substance: LENVATINIB
     Indication: PRODUCT USED FOR UNKNOWN INDICATION
     Dosage: DOSE AND FREQUENCY UNKNOWN
     Route: 065
  6. ULTRAVIST [Suspect]
     Active Substance: IOPROMIDE
     Indication: PRODUCT USED FOR UNKNOWN INDICATION
     Dosage: DOSE AND FREQUENCY UNKNOWN
     Route: 065

REACTIONS (2)
  - Nephropathy toxic [Unknown]
  - Contraindicated product administered [Unknown]
